FAERS Safety Report 21798257 (Version 1)
Quarter: 2022Q4

REPORT INFORMATION
  Report Type: Spontaneous
  Country: RU (occurrence: RU)
  Receive Date: 20221230
  Receipt Date: 20221230
  Transmission Date: 20230112
  Serious: Yes (Hospitalization)
  Sender: FDA-Public Use
  Company Number: RU-BAYER-2022P032773

PATIENT
  Age: 11 Month
  Sex: Female

DRUGS (1)
  1. BETAMETHASONE VALERATE [Suspect]
     Active Substance: BETAMETHASONE VALERATE
     Indication: Eczema
     Dosage: UNK

REACTIONS (2)
  - Asthma [Unknown]
  - Drug effective for unapproved indication [Unknown]
